FAERS Safety Report 9366467 (Version 2)
Quarter: 2014Q3

REPORT INFORMATION
  Report Type: Spontaneous
  Country: JP (occurrence: JP)
  Receive Date: 20130625
  Receipt Date: 20140829
  Transmission Date: 20150326
  Serious: Yes (Hospitalization)
  Sender: FDA-Public Use
  Company Number: JP-BAYER-2013-027735

PATIENT
  Age: 58 Year
  Sex: Male
  Weight: 76 kg

DRUGS (1)
  1. NEXAVAR [Suspect]
     Active Substance: SORAFENIB
     Indication: HEPATOCELLULAR CARCINOMA
     Dosage: 400 MG, QD
     Route: 048
     Dates: start: 20130128, end: 20130520

REACTIONS (6)
  - Palmar-plantar erythrodysaesthesia syndrome [Not Recovered/Not Resolved]
  - Hypertension [Not Recovered/Not Resolved]
  - Pruritus [Recovering/Resolving]
  - Hepatic encephalopathy [Recovering/Resolving]
  - Diarrhoea [Recovering/Resolving]
  - Hydrocele [Recovering/Resolving]

NARRATIVE: CASE EVENT DATE: 20130207
